FAERS Safety Report 23598926 (Version 3)
Quarter: 2024Q1

REPORT INFORMATION
  Report Type: Report from Study
  Country: MX (occurrence: MX)
  Receive Date: 20240306
  Receipt Date: 20240328
  Transmission Date: 20240410
  Serious: Yes (Hospitalization)
  Sender: FDA-Public Use
  Company Number: MX-002147023-NVSC2024MX045115

PATIENT
  Age: 47 Year
  Sex: Female
  Weight: 80 kg

DRUGS (8)
  1. KISQALI [Suspect]
     Active Substance: RIBOCICLIB
     Indication: Breast cancer
     Dosage: 3 DOSAGE FORM, QD
     Route: 048
     Dates: start: 20240219
  2. KISQALI [Suspect]
     Active Substance: RIBOCICLIB
     Indication: Metastases to bone
  3. ONDANSETRON [Concomitant]
     Active Substance: ONDANSETRON
     Indication: Bone pain
     Dosage: 1 DOSAGE FORM, Q24H
     Route: 048
     Dates: start: 20240219
  4. TRAMADOL [Concomitant]
     Active Substance: TRAMADOL\TRAMADOL HYDROCHLORIDE
     Indication: Bone pain
     Dosage: 1 DOSAGE FORM, Q12H
     Route: 048
     Dates: start: 20240219
  5. PREGABALIN [Concomitant]
     Active Substance: PREGABALIN
     Indication: Bone pain
     Dosage: 1 DOSAGE FORM, Q12H
     Route: 048
     Dates: start: 20240219
  6. CELECOXIB [Concomitant]
     Active Substance: CELECOXIB
     Indication: Bone pain
     Dosage: 1 DOSAGE FORM, Q24H
     Route: 048
     Dates: start: 20240219
  7. CLONAZEPAM [Concomitant]
     Active Substance: CLONAZEPAM
     Indication: Sleep disorder
     Dosage: 3 DOSAGE FORM (DROPS),(Q24H) EVERY 24 HOURS AT NIGHT
     Route: 048
  8. IMIPRAMINE [Concomitant]
     Active Substance: IMIPRAMINE
     Indication: Product used for unknown indication
     Dosage: 1 DOSAGE FORM,Q24H (EVERY 24 HOURS AT NIGHT)
     Route: 065

REACTIONS (11)
  - Feeling hot [Not Recovered/Not Resolved]
  - Fatigue [Recovering/Resolving]
  - Body temperature increased [Recovered/Resolved]
  - Nausea [Recovering/Resolving]
  - Pain [Unknown]
  - Gait disturbance [Unknown]
  - Thirst [Unknown]
  - Chills [Recovering/Resolving]
  - Dry mouth [Recovering/Resolving]
  - Constipation [Recovering/Resolving]
  - Dizziness [Not Recovered/Not Resolved]

NARRATIVE: CASE EVENT DATE: 20240201
